FAERS Safety Report 13818788 (Version 2)
Quarter: 2018Q1

REPORT INFORMATION
  Report Type: Report from Study
  Country: US (occurrence: US)
  Receive Date: 20170731
  Receipt Date: 20180201
  Transmission Date: 20180508
  Serious: No
  Sender: FDA-Public Use
  Company Number: US-EXELIXIS-CABO-16007631

PATIENT
  Sex: Male

DRUGS (3)
  1. CABOMETYX [Suspect]
     Active Substance: CABOZANTINIB S-MALATE
     Indication: RENAL CANCER
     Dosage: 40 MG, QD
     Route: 048
     Dates: start: 20161029, end: 201612
  2. CABOMETYX [Suspect]
     Active Substance: CABOZANTINIB S-MALATE
     Dosage: 40 MG, QD
     Route: 048
     Dates: start: 2017
  3. CABOMETYX [Suspect]
     Active Substance: CABOZANTINIB S-MALATE
     Dosage: 20 MG, QD
     Route: 048
     Dates: start: 20170105, end: 2017

REACTIONS (9)
  - Feeling hot [Unknown]
  - Diarrhoea [Not Recovered/Not Resolved]
  - Respiratory tract infection [Unknown]
  - Lung disorder [Unknown]
  - Feeling abnormal [Unknown]
  - Scrotal irritation [Recovering/Resolving]
  - Hyperhidrosis [Unknown]
  - Asthenia [Not Recovered/Not Resolved]
  - Fatigue [Unknown]
